FAERS Safety Report 7309112 (Version 2)
Quarter: 2013Q4

REPORT INFORMATION
  Report Type: Spontaneous
  Country: AU (occurrence: AU)
  Receive Date: 20100309
  Receipt Date: 20131230
  Transmission Date: 20140711
  Serious: No
  Sender: FDA-Public Use
  Company Number: AU-JNJFOC-20100300041

PATIENT
  Sex: Female

DRUGS (3)
  1. DUROGESIC [Suspect]
     Indication: PRODUCT USED FOR UNKNOWN INDICATION
     Route: 062
  2. DUROGESIC [Suspect]
     Indication: PRODUCT USED FOR UNKNOWN INDICATION
     Route: 062
  3. DUROGESIC [Suspect]
     Indication: PRODUCT USED FOR UNKNOWN INDICATION
     Route: 062

REACTIONS (5)
  - Product adhesion issue [Unknown]
  - Hyperhidrosis [Unknown]
  - Breakthrough pain [Unknown]
  - Wrong technique in drug usage process [Unknown]
  - Wrong technique in drug usage process [Unknown]
